FAERS Safety Report 6154734-1 (Version None)
Quarter: 2009Q2

REPORT INFORMATION
  Report Type: 
  Country: None (occurrence: None)
  Receive Date: 20090414
  Receipt Date: 20090407
  Transmission Date: 20091009
  Serious: Yes (Hospitalization)
  Sender: FDA-Public Use
  Company Number: B0568904A

PATIENT
  Sex: Female

DRUGS (9)
  1. DEROXAT [Suspect]
     Indication: DRUG USE FOR UNKNOWN INDICATION
     Dosage: 30MG PER DAY
     Route: 048
     Dates: end: 20090108
  2. PREVISCAN [Suspect]
     Indication: DRUG USE FOR UNKNOWN INDICATION
     Dosage: .25MG THREE TIMES PER DAY
     Route: 048
     Dates: end: 20090108
  3. NEXEN [Suspect]
     Dosage: 100MG TWICE PER DAY
     Dates: start: 20090105, end: 20090108
  4. COZAAR [Concomitant]
     Dosage: 25MG PER DAY
     Route: 065
  5. LASIX [Concomitant]
     Route: 065
     Dates: end: 20090108
  6. ALDACTONE [Concomitant]
     Route: 065
     Dates: end: 20090108
  7. LAMALINE [Concomitant]
     Route: 065
  8. ATARAX [Concomitant]
     Dosage: 25MG SEE DOSAGE TEXT
     Route: 065
  9. COLECALCIFEROL + CALCIUM CARBONATE [Concomitant]
     Route: 065

REACTIONS (5)
  - ANAEMIA [None]
  - HAEMATOMA [None]
  - HAEMORRHAGE [None]
  - INTERNATIONAL NORMALISED RATIO INCREASED [None]
  - PROTHROMBIN LEVEL DECREASED [None]
